FAERS Safety Report 21155062 (Version 1)
Quarter: 2022Q3

REPORT INFORMATION
  Report Type: Spontaneous
  Country: CA (occurrence: CA)
  Receive Date: 20220801
  Receipt Date: 20220801
  Transmission Date: 20221026
  Serious: Yes (Other)
  Sender: FDA-Public Use
  Company Number: CA-BAXTER-2022BAX015997

PATIENT
  Age: 60 Year
  Sex: Female

DRUGS (22)
  1. CYCLOPHOSPHAMIDE [Suspect]
     Active Substance: CYCLOPHOSPHAMIDE
     Indication: Plasma cell myeloma
     Dosage: (550.0 MILLIGRAM, 1 EVERY 1 WEEKS, DOSAGE FORM: NOT SPECIFIED)
     Route: 065
  2. DEXAMETHASONE [Suspect]
     Active Substance: DEXAMETHASONE
     Indication: Plasma cell myeloma
     Dosage: (40.0 MILLIGRAM, 1 EVERY 1 DAYS, DOSAGE FORM: NOT SPECIFIED)
     Route: 065
  3. IXAZOMIB [Suspect]
     Active Substance: IXAZOMIB
     Indication: Plasma cell myeloma
     Dosage: (2.3 MILLIGRAM)
     Route: 048
  4. IXAZOMIB [Suspect]
     Active Substance: IXAZOMIB
     Dosage: (4.0 MILLIGRAM)
     Route: 048
  5. ONDANSETRON [Suspect]
     Active Substance: ONDANSETRON
     Indication: Plasma cell myeloma
     Dosage: (8.0 MILLIGRAM, DOSAGE FORM: NOT SPECIFIED)
     Route: 048
  6. REVLIMID [Suspect]
     Active Substance: LENALIDOMIDE
     Indication: Plasma cell myeloma
     Dosage: (10.0 MILLIGRAM, 1 EVERY 1 DAYS, DOSAGE FORM: CAPSULES)
     Route: 048
  7. ASPIRIN [Concomitant]
     Active Substance: ASPIRIN
     Indication: Product used for unknown indication
     Dosage: (81.0 MILLIGRAM, 1 EVERY 1 DAYS, DOSAGE FORM: NOT SPECIFIED)
     Route: 048
  8. ACYCLOVIR [Concomitant]
     Active Substance: ACYCLOVIR
     Indication: Product used for unknown indication
     Dosage: (400.0 MILLIGRAM, 2 EVERY 1 DAYS, DOSAGE FORM: NOT SPECIFIED)
     Route: 048
  9. CALCIUM CARBONATE\CHOLECALCIFEROL [Concomitant]
     Active Substance: CALCIUM CARBONATE\CHOLECALCIFEROL
     Indication: Product used for unknown indication
     Dosage: (1 EVERY 1 DAYS)
     Route: 048
  10. ChAdOx1 nCoV-19 [Concomitant]
     Indication: Product used for unknown indication
     Dosage: UNK
     Route: 030
  11. ChAdOx1 nCoV-19 [Concomitant]
     Dosage: UNK
     Route: 030
  12. CLOBETASOL [Concomitant]
     Active Substance: CLOBETASOL
     Indication: Product used for unknown indication
     Dosage: (DOSAGE FORM: CREAM)
     Route: 061
  13. DULOXETINE HYDROCHLORIDE [Concomitant]
     Active Substance: DULOXETINE HYDROCHLORIDE
     Indication: Product used for unknown indication
     Dosage: (90.0 MILLIGRAM 1 EVERY 1 DAYS, DOSAGE FORM: CAPSULE, DELAYED RELEASE)
     Route: 048
  14. LEVOTHYROXINE SODIUM [Concomitant]
     Active Substance: LEVOTHYROXINE SODIUM
     Indication: Product used for unknown indication
     Dosage: (0.075 MILLIGRAM, 1 EVERY 1 DAYS, DOSAGE FORM: NOT SPECIFIED)
     Route: 048
  15. LORAZEPAM [Concomitant]
     Active Substance: LORAZEPAM
     Indication: Product used for unknown indication
     Dosage: (DOSAGE FORM: NOT SPECIFIED)
     Route: 048
  16. METRONIDAZOLE [Concomitant]
     Active Substance: METRONIDAZOLE
     Indication: Product used for unknown indication
     Dosage: (DOSAGE FORM: NOT SPECIFIED)
     Route: 061
  17. MOMETASONE [Concomitant]
     Active Substance: MOMETASONE
     Indication: Product used for unknown indication
     Route: 061
  18. NORTRIPTYLINE [Concomitant]
     Active Substance: NORTRIPTYLINE
     Indication: Product used for unknown indication
     Dosage: (30.0 MILLIGRAM, 1 EVERY 1 DAYS, DOSAGE FORM: CAPSULES)
     Route: 048
  19. PREGABALIN [Concomitant]
     Active Substance: PREGABALIN
     Indication: Product used for unknown indication
     Dosage: (50.0 MILLIGRAM, 2 EVERY 1 DAYS, DOSAGE FORM: CAPSULES)
     Route: 048
  20. ACETAMINOPHEN\TRAMADOL [Concomitant]
     Active Substance: ACETAMINOPHEN\TRAMADOL
     Indication: Product used for unknown indication
     Route: 048
  21. VITAMIN B12 [Concomitant]
     Active Substance: CYANOCOBALAMIN
     Indication: Product used for unknown indication
     Dosage: (1000.0 MICROGRAM, 1 EVERY 1 DAYS, DOSAGE FORM: NOT SPECIFIED)
     Route: 048
  22. ZOLEDRONIC ACID [Concomitant]
     Active Substance: ZOLEDRONIC ACID
     Indication: Product used for unknown indication
     Dosage: (4.0 MILLIGRAM, DOSAGE FORM: NOT SPECIFIED, INTRAVENOUS (NOT OTHERWISE SPECIFIED)
     Route: 042

REACTIONS (11)
  - Abdominal distension [Not Recovered/Not Resolved]
  - Back pain [Not Recovered/Not Resolved]
  - Dry skin [Not Recovered/Not Resolved]
  - Gastrointestinal disorder [Not Recovered/Not Resolved]
  - Rash papular [Not Recovered/Not Resolved]
  - Skin disorder [Not Recovered/Not Resolved]
  - Skin ulcer [Not Recovered/Not Resolved]
  - Nasopharyngitis [Not Recovered/Not Resolved]
  - Diarrhoea [Not Recovered/Not Resolved]
  - Constipation [Not Recovered/Not Resolved]
  - Neuropathy peripheral [Not Recovered/Not Resolved]
